FAERS Safety Report 5810816-2 (Version None)
Quarter: 2008Q3

REPORT INFORMATION
  Report Type: 
  Country: None (occurrence: None)
  Receive Date: 20080715
  Receipt Date: 20080711
  Transmission Date: 20090109
  Serious: Yes (Life-Threatening)
  Sender: FDA-Public Use
  Company Number: US-GILEAD-2008-0017214

PATIENT
  Age: 35 Year
  Sex: Male
  Weight: 61.29 kg

DRUGS (5)
  1. TRUVADA [Suspect]
     Indication: HIV INFECTION
     Dosage: 200MG/300MG
     Route: 048
     Dates: start: 20060327
  2. SUSTIVA [Suspect]
     Indication: HIV INFECTION
     Route: 048
     Dates: start: 20060327
  3. TRAZODONE HCL [Concomitant]
     Indication: INSOMNIA
     Dosage: 25MG TO 50MG AT BEDTIME
     Route: 048
  4. MULTI-VITAMINS [Concomitant]
     Route: 048
  5. FLONASE [Concomitant]
     Route: 045

REACTIONS (1)
  - HODGKIN'S DISEASE [None]
